FAERS Safety Report 8618128-9 (Version None)
Quarter: 2012Q3

REPORT INFORMATION
  Report Type: 
  Country: None (occurrence: None)
  Receive Date: 20120824
  Receipt Date: 20120217
  Transmission Date: 20120928
  Serious: No
  Sender: FDA-Public Use
  Company Number: US-ASTRAZENECA-2010SE12937

PATIENT
  Age: 65 Year
  Sex: Female

DRUGS (3)
  1. NEXIUM [Suspect]
     Indication: GASTROOESOPHAGEAL REFLUX DISEASE
     Route: 048
  2. SYMBICORT [Suspect]
     Indication: ASTHMA
     Route: 055
     Dates: start: 20110401
  3. PRILOSEC [Suspect]
     Route: 048

REACTIONS (5)
  - FEELING ABNORMAL [None]
  - DYSPEPSIA [None]
  - DRUG INEFFECTIVE [None]
  - DRUG DOSE OMISSION [None]
  - RESPIRATORY DISORDER [None]
